FAERS Safety Report 5877014-8 (Version None)
Quarter: 2008Q3

REPORT INFORMATION
  Report Type: 
  Country: None (occurrence: None)
  Receive Date: 20080910
  Receipt Date: 20080902
  Transmission Date: 20090109
  Serious: Yes (Other)
  Sender: FDA-Public Use
  Company Number: PHHY2008FR19866

PATIENT
  Sex: Male

DRUGS (1)
  1. CARTEOLOL HYDROCHLORIDE [Suspect]
     Route: 047

REACTIONS (1)
  - MYASTHENIA GRAVIS [None]
